FAERS Safety Report 6803450-9 (Version None)
Quarter: 2010Q2

REPORT INFORMATION
  Report Type: 
  Country: None (occurrence: None)
  Receive Date: 20100628
  Receipt Date: 20100617
  Transmission Date: 20101027
  Serious: Yes (Hospitalization)
  Sender: FDA-Public Use
  Company Number: FR-ROCHE-710353

PATIENT
  Sex: Female

DRUGS (13)
  1. HERCEPTIN [Suspect]
     Indication: BREAST CANCER
     Route: 042
     Dates: start: 20100520, end: 20100520
  2. TAXOTERE [Suspect]
     Indication: BREAST CANCER
     Route: 042
     Dates: start: 20100521, end: 20100521
  3. PRETERAX [Suspect]
     Indication: DRUG USE FOR UNKNOWN INDICATION
     Dosage: STRENGTH: 2 MG/0.625 MG
     Route: 048
     Dates: start: 20100518, end: 20100527
  4. ZOPHREN [Suspect]
     Indication: DRUG USE FOR UNKNOWN INDICATION
     Dosage: DOSE TAKEN ON 20 MAY 2010 AND 21 MAY 2010
     Route: 042
     Dates: start: 20100520, end: 20100521
  5. SOLU-MEDROL [Suspect]
     Indication: DRUG USE FOR UNKNOWN INDICATION
     Dosage: DOSE TAKEN ON 20 MAY 2010, 21 MAY 2010 AND 22 MAY 2010,
     Route: 042
     Dates: start: 20100520, end: 20100522
  6. CORTANCYL [Suspect]
     Indication: DRUG USE FOR UNKNOWN INDICATION
     Dosage: DOSE TAKEN ON 20, 21, 22 MAY 2010, ROUTE: PER OS
     Route: 048
     Dates: start: 20100520, end: 20100522
  7. RANIPLEX [Suspect]
     Indication: DRUG USE FOR UNKNOWN INDICATION
     Dosage: ROUTE REPORTED AS PER OS, DOSE TAKEN ON 20 MAY 2010
     Route: 048
     Dates: start: 20100520, end: 20100520
  8. LEVOTHYROXINE SODIUM [Concomitant]
     Dates: start: 20040101
  9. VENTOLIN [Concomitant]
     Dosage: TAKEN FOR 30 YEARS
  10. POLARAMINE [Concomitant]
     Dosage: DOSE TAKEN ON 20 MAY 2010
     Dates: start: 20100520, end: 20100520
  11. INIPOMP [Concomitant]
     Dates: start: 20100520, end: 20100527
  12. GYNO-PEVARYL [Concomitant]
     Dosage: DOSE TAKEN ON 21 MAY 2010
     Dates: start: 20100521, end: 20100521
  13. GRANOCYTE [Concomitant]
     Dates: start: 20100524

REACTIONS (1)
  - ACUTE GENERALISED EXANTHEMATOUS PUSTULOSIS [None]
